FAERS Safety Report 7375956-8 (Version None)
Quarter: 2011Q1

REPORT INFORMATION
  Report Type: 
  Country: None (occurrence: None)
  Receive Date: 20110325
  Receipt Date: 20110323
  Transmission Date: 20110831
  Serious: Yes (Other)
  Sender: FDA-Public Use
  Company Number: IE-ROXANE LABORATORIES, INC.-2011-RO-00396RO

PATIENT
  Age: 67 Year
  Sex: Male

DRUGS (2)
  1. AZATHIOPRINE [Suspect]
     Indication: DERMATOMYOSITIS
  2. PREDNISOLONE [Suspect]
     Indication: DERMATOMYOSITIS

REACTIONS (2)
  - EPSTEIN-BARR VIRUS TEST POSITIVE [None]
  - DIFFUSE LARGE B-CELL LYMPHOMA [None]
